FAERS Safety Report 5778407-X (Version None)
Quarter: 2008Q2

REPORT INFORMATION
  Report Type: 
  Country: None (occurrence: None)
  Receive Date: 20080619
  Receipt Date: 20070829
  Transmission Date: 20081010
  Serious: No
  Sender: FDA-Public Use
  Company Number: A0668657A

PATIENT
  Age: 66 Year
  Sex: Female

DRUGS (3)
  1. ZYBAN [Suspect]
     Dosage: 150MG PER DAY
     Route: 048
     Dates: start: 20070803
  2. LIPITOR [Concomitant]
  3. FOSAMAX [Concomitant]

REACTIONS (1)
  - DRUG INEFFECTIVE [None]
